FAERS Safety Report 16983829 (Version 1)
Quarter: 2019Q4

REPORT INFORMATION
  Report Type: Spontaneous
  Country: GB (occurrence: GB)
  Receive Date: 20191101
  Receipt Date: 20191101
  Transmission Date: 20200122
  Serious: Yes (Other)
  Sender: FDA-Public Use
  Company Number: GB-MYLANLABS-2019M1103601

PATIENT
  Age: 76 Year
  Sex: Female
  Weight: 61 kg

DRUGS (9)
  1. CLONAZEPAM. [Concomitant]
     Active Substance: CLONAZEPAM
     Dosage: 1 DOSAGE FORM, PRN (1 THREE TIMES DAILY)
     Dates: start: 20180320
  2. VOLTAROL [Concomitant]
     Active Substance: DICLOFENAC SODIUM
     Dosage: 3 DOSAGE FORM, QD
     Dates: start: 20180320
  3. CLOPIDOGREL [Concomitant]
     Active Substance: CLOPIDOGREL BISULFATE
     Dosage: 1 DOSAGE FORM, QD
     Dates: start: 20180320
  4. ATENOLOL. [Concomitant]
     Active Substance: ATENOLOL
     Dosage: 1 DOSAGE FORM, QD
     Dates: start: 20180320
  5. ATORVASTATIN [Concomitant]
     Active Substance: ATORVASTATIN
     Dosage: 1 DOSAGE FORM, QD
     Dates: start: 20180320
  6. CLOTRIMAZOLE. [Concomitant]
     Active Substance: CLOTRIMAZOLE
     Dosage: 1 DOSAGE FORM, QD (INSERT AT NIGHT)
     Dates: start: 20180510, end: 20180511
  7. OMEPRAZOLE. [Concomitant]
     Active Substance: OMEPRAZOLE
     Dosage: 1 DOSAGE FORM, QD
     Dates: start: 20180628
  8. RAMIPRIL. [Suspect]
     Active Substance: RAMIPRIL
     Indication: PRODUCT USED FOR UNKNOWN INDICATION
     Dosage: UNK
     Dates: start: 20180628
  9. NITROFURANTOIN. [Concomitant]
     Active Substance: NITROFURANTOIN
     Dosage: 2 DOSAGE FORM, QD
     Dates: start: 20180510, end: 20180513

REACTIONS (2)
  - Headache [Recovered/Resolved]
  - Joint swelling [Unknown]

NARRATIVE: CASE EVENT DATE: 20180703
